FAERS Safety Report 17860985 (Version 1)
Quarter: 2020Q2

REPORT INFORMATION
  Report Type: Spontaneous
  Country: ES (occurrence: ES)
  Receive Date: 20200604
  Receipt Date: 20200604
  Transmission Date: 20200714
  Serious: Yes (Death)
  Sender: FDA-Public Use
  Company Number: ES-MYLANLABS-2020M1054146

PATIENT
  Age: 73 Year
  Sex: Female

DRUGS (9)
  1. DIGOXIN. [Suspect]
     Active Substance: DIGOXIN
     Indication: TACHYCARDIA
     Dosage: UNK, EVERY
     Route: 042
     Dates: start: 20200326, end: 20200326
  2. METHYLPREDNISOLONE. [Concomitant]
     Active Substance: METHYLPREDNISOLONE
     Indication: SIALOADENITIS
     Dosage: 40 MILLIGRAM, QD
     Route: 042
     Dates: start: 20200321, end: 20200326
  3. AMOXICILLIN CLAVULANIC ACID [Concomitant]
     Active Substance: AMOXICILLIN\CLAVULANIC ACID
     Indication: SIALOADENITIS
     Dosage: 2 GRAM EVERY 8 HOUR
     Route: 042
     Dates: start: 20200321, end: 20200326
  4. METAMIZOLE [Suspect]
     Active Substance: METAMIZOLE
     Indication: PAIN
     Dosage: 1 GRAM EVERY 8 HOUR
     Route: 042
     Dates: start: 20200323, end: 20200327
  5. GLYCERYL TRINITRATE [Suspect]
     Active Substance: NITROGLYCERIN
     Indication: PRODUCT USED FOR UNKNOWN INDICATION
     Dosage: 5 MILLIGRAM, QD
     Route: 061
     Dates: start: 20200324, end: 20200326
  6. PARACETAMOL [Concomitant]
     Active Substance: ACETAMINOPHEN
     Indication: PAIN
     Dosage: 1 GRAM EVERY 8 HOUR
     Route: 042
     Dates: start: 20200321, end: 20200326
  7. PANTOPRAZOLE [Concomitant]
     Active Substance: PANTOPRAZOLE
     Indication: PROPHYLAXIS
     Dosage: 40 MILLIGRAM, QD
     Route: 048
     Dates: start: 20200321, end: 20200326
  8. HYDROXYCHLOROQUINE SULFATE. [Suspect]
     Active Substance: HYDROXYCHLOROQUINE SULFATE
     Indication: COVID-19 PNEUMONIA
     Dosage: 400 MILLIGRAM, QD
     Route: 048
     Dates: start: 20200326, end: 20200326
  9. PIPERACILINA + TAZOBACTAM [Concomitant]
     Active Substance: PIPERACILLIN SODIUM\TAZOBACTAM SODIUM
     Indication: PROPHYLAXIS
     Dosage: 4 GRAM EVERY 8 HOUR
     Route: 042
     Dates: start: 20200326, end: 20200327

REACTIONS (4)
  - Coma [Fatal]
  - Hypotension [Fatal]
  - Cardio-respiratory arrest [Fatal]
  - Tachycardia [Fatal]

NARRATIVE: CASE EVENT DATE: 20200327
